FAERS Safety Report 5254728-4 (Version None)
Quarter: 2007Q1

REPORT INFORMATION
  Report Type: 
  Country: None (occurrence: None)
  Receive Date: 20070227
  Receipt Date: 20070220
  Transmission Date: 20070707
  Serious: Yes (Life-Threatening, Hospitalization, Other)
  Sender: FDA-Public Use
  Company Number: 2007RL000070

PATIENT
  Age: 72 Year
  Sex: Male
  Weight: 88.4514 kg

DRUGS (1)
  1. OMACOR [Suspect]
     Indication: BLOOD TRIGLYCERIDES INCREASED
     Dosage: 4 GM;QD;PO
     Route: 048
     Dates: start: 20050101

REACTIONS (3)
  - ARRHYTHMIA [None]
  - CORONARY ARTERY OCCLUSION [None]
  - DIZZINESS [None]
